FAERS Safety Report 12972973 (Version 1)
Quarter: 2016Q4

REPORT INFORMATION
  Report Type: Spontaneous
  Country: US (occurrence: US)
  Receive Date: 20161124
  Receipt Date: 20161124
  Transmission Date: 20170207
  Serious: No
  Sender: FDA-Public Use
  Company Number: US-PFIZER INC-2016538593

PATIENT
  Age: 42 Year
  Sex: Female

DRUGS (2)
  1. ANASTROZOLE. [Concomitant]
     Active Substance: ANASTROZOLE
  2. IBRANCE [Suspect]
     Active Substance: PALBOCICLIB
     Indication: BREAST CANCER FEMALE
     Dosage: 125 MG, CYCLIC (21 DAYS ON/ 7 DAYS OFF)
     Dates: start: 20161111

REACTIONS (2)
  - Nausea [Recovering/Resolving]
  - Off label use [Unknown]
